FAERS Safety Report 7381002-2 (Version None)
Quarter: 2011Q1

REPORT INFORMATION
  Report Type: 
  Country: None (occurrence: None)
  Receive Date: 20110329
  Receipt Date: 20110325
  Transmission Date: 20110831
  Serious: No
  Sender: FDA-Public Use
  Company Number: US-TEVA-273365USA

PATIENT
  Sex: Female
  Weight: 104.42 kg

DRUGS (2)
  1. PLAN B ONE-STEP [Suspect]
     Route: 048
     Dates: start: 20110315, end: 20110315
  2. PLAN B ONE-STEP [Suspect]
     Indication: POST COITAL CONTRACEPTION
     Route: 048
     Dates: start: 20110221, end: 20110221

REACTIONS (3)
  - MENSTRUATION IRREGULAR [None]
  - MENSTRUATION DELAYED [None]
  - PELVIC PAIN [None]
